FAERS Safety Report 21823341 (Version 2)
Quarter: 2023Q1

REPORT INFORMATION
  Report Type: Spontaneous
  Country: US (occurrence: US)
  Receive Date: 20230105
  Receipt Date: 20230107
  Transmission Date: 20230417
  Serious: No
  Sender: FDA-Public Use
  Company Number: US-JNJFOC-20230104723

PATIENT
  Sex: Female

DRUGS (1)
  1. CONCERTA [Suspect]
     Active Substance: METHYLPHENIDATE HYDROCHLORIDE
     Indication: Depression
     Dosage: 2 OF THE 36 MG PILLS,PRESCRIBED THE 54 MG TABLETS AND THE 18 MG TABLETS IN RESPONSE TO THE SHORTAGE.
     Route: 048

REACTIONS (2)
  - Product availability issue [Unknown]
  - Off label use [Unknown]
